FAERS Safety Report 5014935-2 (Version None)
Quarter: 2006Q2

REPORT INFORMATION
  Report Type: 
  Country: None (occurrence: None)
  Receive Date: 20060531
  Receipt Date: 20050928
  Transmission Date: 20061013
  Serious: Yes (Hospitalization)
  Sender: FDA-Public Use
  Company Number: AU-ROCHE-419125

PATIENT
  Age: 21 Year
  Sex: Male
  Weight: 66.7 kg

DRUGS (5)
  1. DACLIZUMAB (HYPM) [Suspect]
     Indication: ASTHMA
     Route: 058
     Dates: start: 20050720, end: 20050720
  2. DACLIZUMAB (HYPM) [Suspect]
     Dosage: 3 DOSES.
     Route: 058
     Dates: start: 20050803, end: 20050831
  3. ASCORBIC ACID [Concomitant]
     Dosage: INDICATION REPORTED AS GENERAL HEALTH AND A BLOCKED NOSE.
  4. BETAMETHASONE ACETATE [Concomitant]
     Indication: BURSITIS
     Dates: start: 20050822
  5. BETAMETHASONE SODIUM PHOSPHATE [Concomitant]
     Indication: BURSITIS
     Dates: start: 20050822

REACTIONS (17)
  - ACTIVATED PARTIAL THROMBOPLASTIN TIME PROLONGED [None]
  - DIARRHOEA [None]
  - DIZZINESS [None]
  - FATIGUE [None]
  - HEPATIC ENZYME ABNORMAL [None]
  - HEPATITIS [None]
  - INFLUENZA LIKE ILLNESS [None]
  - INJECTION SITE PAIN [None]
  - INTERNATIONAL NORMALISED RATIO INCREASED [None]
  - MYOCARDITIS [None]
  - NIGHT SWEATS [None]
  - PERICARDITIS [None]
  - PNEUMONIA VIRAL [None]
  - RESPIRATORY TRACT INFECTION VIRAL [None]
  - SYNCOPE VASOVAGAL [None]
  - THROMBOCYTOPENIA [None]
  - VENTRICULAR DYSFUNCTION [None]
